FAERS Safety Report 11267642 (Version 2)
Quarter: 2015Q3

REPORT INFORMATION
  Report Type: Spontaneous
  Country: US (occurrence: US)
  Receive Date: 20150713
  Receipt Date: 20150831
  Transmission Date: 20151125
  Serious: Yes (Other)
  Sender: FDA-Public Use
  Company Number: US-GLAXOSMITHKLINE-A0999285A

PATIENT
  Age: 70 Year
  Sex: Male

DRUGS (5)
  1. ANTI-EMETIC [Concomitant]
     Active Substance: UNSPECIFIED INGREDIENT
  2. ADVAIR HFA [Suspect]
     Active Substance: FLUTICASONE PROPIONATE\SALMETEROL XINAFOATE
     Indication: TOTAL LUNG CAPACITY DECREASED
     Dosage: 500MCG/50MCG, UNK
     Route: 065
     Dates: start: 2008
  3. ADVAIR HFA [Suspect]
     Active Substance: FLUTICASONE PROPIONATE\SALMETEROL XINAFOATE
     Indication: ASTHMA
     Dosage: 250/50 MCG
     Route: 055
  4. LOVAZA [Suspect]
     Active Substance: OMEGA-3-ACID ETHYL ESTERS
     Indication: CARDIAC DISORDER
     Dosage: 1 G, U
     Route: 048
     Dates: start: 2008
  5. LOVAZA [Suspect]
     Active Substance: OMEGA-3-ACID ETHYL ESTERS
     Indication: ENDOCRINE DISORDER

REACTIONS (5)
  - Cataract operation [Unknown]
  - Gastroenteritis viral [Unknown]
  - Malaise [Unknown]
  - Nausea [Unknown]
  - Diabetes mellitus [Unknown]

NARRATIVE: CASE EVENT DATE: 2012
